FAERS Safety Report 10243672 (Version 1)
Quarter: 2014Q1

REPORT INFORMATION
  Report Type: Spontaneous
  Country: US (occurrence: None)
  Receive Date: 20140306
  Receipt Date: 20140306
  Transmission Date: 20141002
  Serious: Yes (Other)
  Sender: FDA-Public Use
  Company Number: 163-21880-13114165

PATIENT
  Age: 63 Year
  Sex: Female

DRUGS (6)
  1. REVLIMID (LENALIDOMIDE) (25 MILLIGRAM, CAPSULES) [Suspect]
     Indication: PLASMA CELL MYELOMA
     Route: 048
     Dates: start: 20131104, end: 20131110
  2. TYLENOL (PARACETAMOL) [Concomitant]
  3. MIRALAX (MACROGOL) [Concomitant]
  4. PREVACID (LANSOPRAZOLE) [Concomitant]
  5. DEXAMETHASONE [Concomitant]
  6. VELCADE (BORTEZOMIB) [Concomitant]

REACTIONS (1)
  - Swelling face [None]
